FAERS Safety Report 6653191-6 (Version None)
Quarter: 2010Q1

REPORT INFORMATION
  Report Type: 
  Country: None (occurrence: None)
  Receive Date: 20100326
  Receipt Date: 20100315
  Transmission Date: 20100710
  Serious: Yes (Other)
  Sender: FDA-Public Use
  Company Number: JP-BRISTOL-MYERS SQUIBB COMPANY-15026099

PATIENT
  Age: 69 Year
  Sex: Male
  Weight: 65 kg

DRUGS (13)
  1. BRIPLATIN [Suspect]
     Indication: LUNG NEOPLASM MALIGNANT
     Route: 041
     Dates: start: 20091201
  2. TAXOL [Suspect]
  3. IRINOTECAN HCL [Suspect]
     Dosage: INJ
     Route: 041
  4. ZOLPIDEM TARTRATE [Concomitant]
     Dosage: TABS
     Route: 048
  5. ITOPRIDE HCL [Concomitant]
     Dosage: TABS
     Route: 048
  6. CANDESARTAN CILEXETIL [Concomitant]
     Dosage: TABS
     Route: 048
  7. DEXAMETHASONE [Concomitant]
     Dosage: TABS
     Route: 048
  8. LEVOFLOXACIN [Concomitant]
     Dosage: HYDRATE;TABS
     Route: 048
  9. TRICHLORMETHIAZIDE [Concomitant]
     Dosage: TABS
     Route: 048
  10. RAMOSETRON HCL [Concomitant]
     Dosage: TABS
     Route: 048
  11. NIFEDIPINE [Concomitant]
     Dosage: TABS
     Route: 048
  12. LOPERAMIDE HCL [Concomitant]
     Dosage: CAPSULE
     Route: 048
  13. CLOSTRIDIUM BUTYRICUM [Concomitant]
     Dosage: TABS;ACTIVE PROBIOTIC PRODUCTS
     Route: 048

REACTIONS (5)
  - ABDOMINAL PAIN [None]
  - ERYTHEMA [None]
  - PRODUCTIVE COUGH [None]
  - PYREXIA [None]
  - RASH [None]
